FAERS Safety Report 17558438 (Version 3)
Quarter: 2020Q2

REPORT INFORMATION
  Report Type: Spontaneous
  Country: FR (occurrence: FR)
  Receive Date: 20200319
  Receipt Date: 20200520
  Transmission Date: 20200713
  Serious: Yes (Other)
  Sender: FDA-Public Use
  Company Number: FR-AUROBINDO-AUR-APL-2020-013778

PATIENT
  Age: 42 Year
  Sex: Male

DRUGS (4)
  1. BISOPROLOL 2.5 MG TABLET [Suspect]
     Active Substance: BISOPROLOL
     Indication: HYPERTENSION
     Dosage: 1 DOSAGE FORM, ONCE A DAY AM
     Route: 048
  2. RAMIPRIL. [Suspect]
     Active Substance: RAMIPRIL
     Indication: HYPERTENSION
     Dosage: 5 MILLIGRAM, ONCE A DAY AM
     Route: 065
  3. BISOPROLOL 2.5 MG TABLET [Suspect]
     Active Substance: BISOPROLOL
     Dosage: 2.5 MILLIGRAM, ONCE A DAY (THE MORNING)
     Route: 065
  4. RAMIPRIL. [Concomitant]
     Active Substance: RAMIPRIL
     Indication: HYPERTENSION
     Dosage: 5 MILLIGRAM, ONCE A DAY,IN THE MORNING
     Route: 065

REACTIONS (2)
  - Erectile dysfunction [Unknown]
  - Drug ineffective [Unknown]
